FAERS Safety Report 25568061 (Version 3)
Quarter: 2025Q3

REPORT INFORMATION
  Report Type: Spontaneous
  Country: AU (occurrence: AU)
  Receive Date: 20250716
  Receipt Date: 20250909
  Transmission Date: 20251021
  Serious: Yes (Death)
  Sender: KAMADA BIOPHARMACEUTICALS
  Company Number: AU-KAMADA LIMITED- 2025-KAM-AU000473

PATIENT

DRUGS (6)
  1. KAMRAB [Suspect]
     Active Substance: HUMAN RABIES VIRUS IMMUNE GLOBULIN
     Indication: Rabies immunisation
     Dates: start: 20241025
  2. VERORAB [Suspect]
     Active Substance: RABIES VACCINE
     Indication: Rabies immunisation
     Dates: start: 20241025
  3. VERORAB [Suspect]
     Active Substance: RABIES VACCINE
     Dates: start: 20241028
  4. VERORAB [Suspect]
     Active Substance: RABIES VACCINE
     Dates: start: 20241101
  5. VERORAB [Suspect]
     Active Substance: RABIES VACCINE
     Dates: start: 20241108
  6. BOOSTRIX [Concomitant]
     Active Substance: TETANUS TOXOID, REDUCED DIPHTHERIA TOXOID AND ACELLULAR PERTUSSIS VACCINE ADSORBED, TDAP

REACTIONS (1)
  - Drug ineffective [Fatal]

NARRATIVE: CASE EVENT DATE: 20250601
